FAERS Safety Report 17205200 (Version 2)
Quarter: 2019Q4

REPORT INFORMATION
  Report Type: Report from Study
  Country: US (occurrence: US)
  Receive Date: 20191227
  Receipt Date: 20191230
  Transmission Date: 20200122
  Serious: No
  Sender: FDA-Public Use
  Company Number: US-TEVA-2019-US-1157746

PATIENT
  Sex: Male

DRUGS (1)
  1. AUSTEDO [Suspect]
     Active Substance: DEUTETRABENAZINE
     Indication: TARDIVE DYSKINESIA
     Dosage: 30 MILLIGRAM DAILY;
     Route: 048
     Dates: start: 20191121

REACTIONS (8)
  - Decreased interest [Unknown]
  - Oropharyngeal pain [Unknown]
  - Drug ineffective [Unknown]
  - Depressed mood [Not Recovered/Not Resolved]
  - Dysphagia [Unknown]
  - Nasal discomfort [Unknown]
  - Throat irritation [Unknown]
  - Dysphonia [Unknown]
